FAERS Safety Report 26056371 (Version 1)
Quarter: 2025Q4

REPORT INFORMATION
  Report Type: Spontaneous
  Country: EU (occurrence: EU)
  Receive Date: 20251118
  Receipt Date: 20251118
  Transmission Date: 20260118
  Serious: Yes (Death)
  Sender: BOEHRINGER INGELHEIM
  Company Number: None

PATIENT
  Age: 81 Year
  Sex: Male

DRUGS (6)
  1. PRADAXA [Suspect]
     Active Substance: DABIGATRAN ETEXILATE MESYLATE
     Indication: Atrial fibrillation
  2. CIPRALEX [Suspect]
     Active Substance: ESCITALOPRAM OXALATE
     Indication: Depression
  3. Folsyre / Folsyre Orifarm [Concomitant]
     Indication: Product used for unknown indication
  4. Atorvastatin / Lipitor [Concomitant]
     Indication: Hypercholesterolaemia
  5. Dutasterid, Tamsulosin / Duodart [Concomitant]
     Indication: Benign prostatic hyperplasia
     Dosage: STRENGTH DUTASTERID 0,5 MILLIGRAM ?TAMSULOSIN 0,4 MILLIGRAM
  6. Levokabastin / Livostin [Concomitant]
     Indication: Hypersensitivity
     Dosage: 0,5 MILLIGRAM

REACTIONS (2)
  - Brain stem haemorrhage [Fatal]
  - Drug interaction [Fatal]

NARRATIVE: CASE EVENT DATE: 20251025
